FAERS Safety Report 5441745-4 (Version None)
Quarter: 2007Q3

REPORT INFORMATION
  Report Type: 
  Country: None (occurrence: None)
  Receive Date: 20070904
  Receipt Date: 20070828
  Transmission Date: 20080115
  Serious: Yes (Death, Other)
  Sender: FDA-Public Use
  Company Number: BE-ABBOTT-07P-013-0415382-00

PATIENT
  Sex: Male

DRUGS (6)
  1. KALETRA [Suspect]
     Indication: HIV INFECTION
     Dates: start: 20070523, end: 20070701
  2. KALETRA [Suspect]
     Dates: start: 20070702
  3. LAMIVUDINE [Concomitant]
     Indication: HIV INFECTION
     Dates: start: 20070523, end: 20070701
  4. TENOFOVIR DISOPROXIL FUMARATE [Concomitant]
     Indication: HIV INFECTION
     Dates: start: 20070523, end: 20070701
  5. TENOFOVIR DISOPROXIL FUMARATE [Concomitant]
     Dates: start: 20070702
  6. EPIVIR SYRUP [Concomitant]
     Indication: HIV INFECTION
     Dates: start: 20070702

REACTIONS (7)
  - FEBRILE NEUTROPENIA [None]
  - KLEBSIELLA SEPSIS [None]
  - LYMPHOMA [None]
  - PNEUMONIA STAPHYLOCOCCAL [None]
  - RENAL FAILURE ACUTE [None]
  - RESPIRATORY DISTRESS [None]
  - SEPSIS [None]
